FAERS Safety Report 17921844 (Version 1)
Quarter: 2020Q2

REPORT INFORMATION
  Report Type: Spontaneous
  Country: CA (occurrence: CA)
  Receive Date: 20200622
  Receipt Date: 20200622
  Transmission Date: 20200714
  Serious: Yes (Other)
  Sender: FDA-Public Use
  Company Number: CA-TEVA-2020-CA-1790062

PATIENT
  Age: 67 Year
  Sex: Female

DRUGS (17)
  1. VITAMIN D [Concomitant]
     Active Substance: VITAMIN D NOS
  2. AMLODIPINE [Concomitant]
     Active Substance: AMLODIPINE BESYLATE
  3. CYANOCOBALAMIN. [Concomitant]
     Active Substance: CYANOCOBALAMIN
  4. IRON [Concomitant]
     Active Substance: IRON
  5. PRAMIPEXOLE. [Concomitant]
     Active Substance: PRAMIPEXOLE
  6. BUDESONIDE. [Suspect]
     Active Substance: BUDESONIDE
     Indication: PRODUCT USED FOR UNKNOWN INDICATION
     Route: 065
  7. INFLIXIMAB [Suspect]
     Active Substance: INFLIXIMAB
     Indication: CROHN^S DISEASE
     Route: 042
  8. RAMIPRIL. [Concomitant]
     Active Substance: RAMIPRIL
  9. SERTRALINE [Concomitant]
     Active Substance: SERTRALINE HYDROCHLORIDE
  10. MAGNESIUM OXIDE. [Suspect]
     Active Substance: MAGNESIUM OXIDE
     Indication: PRODUCT USED FOR UNKNOWN INDICATION
     Route: 065
  11. HYDROCHLOROTHIAZIDE. [Concomitant]
     Active Substance: HYDROCHLOROTHIAZIDE
  12. ZEPATIER [Concomitant]
     Active Substance: ELBASVIR\GRAZOPREVIR
  13. CODEINE [Concomitant]
     Active Substance: CODEINE
  14. ALENDRONATE [Concomitant]
     Active Substance: ALENDRONATE SODIUM
  15. ATENOL [Concomitant]
     Active Substance: ATENOLOL
  16. PROPRANOLOL [Concomitant]
     Active Substance: PROPRANOLOL HYDROCHLORIDE
  17. ERGOCALCIFEROL. [Concomitant]
     Active Substance: ERGOCALCIFEROL

REACTIONS (5)
  - Arthralgia [Not Recovered/Not Resolved]
  - Abdominal pain [Not Recovered/Not Resolved]
  - Insomnia [Not Recovered/Not Resolved]
  - Headache [Not Recovered/Not Resolved]
  - Hypertension [Not Recovered/Not Resolved]
